FAERS Safety Report 16702624 (Version 4)
Quarter: 2020Q2

REPORT INFORMATION
  Report Type: Spontaneous
  Country: US (occurrence: US)
  Receive Date: 20190814
  Receipt Date: 20200519
  Transmission Date: 20200713
  Serious: Yes (Hospitalization, Other)
  Sender: FDA-Public Use
  Company Number: US-PFIZER INC-2019346155

PATIENT
  Age: 75 Year
  Sex: Male

DRUGS (1)
  1. XELJANZ [Suspect]
     Active Substance: TOFACITINIB CITRATE
     Indication: RHEUMATOID ARTHRITIS
     Dosage: 5 MG, UNK
     Dates: start: 2018

REACTIONS (7)
  - Basal cell carcinoma [Unknown]
  - Drug dependence [Unknown]
  - Inguinal hernia [Unknown]
  - Infected lymphocele [Unknown]
  - Squamous cell carcinoma [Unknown]
  - Prostate cancer [Unknown]
  - Septic shock [Unknown]

NARRATIVE: CASE EVENT DATE: 201911
